FAERS Safety Report 12324579 (Version 1)
Quarter: 2016Q2

REPORT INFORMATION
  Report Type: Report from Study
  Country: US (occurrence: US)
  Receive Date: 20160502
  Receipt Date: 20160502
  Transmission Date: 20160815
  Serious: No
  Sender: FDA-Public Use
  Company Number: US-ABBVIE-15P-163-1394340-00

PATIENT
  Sex: Male

DRUGS (1)
  1. ANDROGEL [Suspect]
     Active Substance: TESTOSTERONE
     Indication: PRODUCT USED FOR UNKNOWN INDICATION
     Dosage: 2 PUMPS
     Route: 061

REACTIONS (4)
  - Intentional product misuse [Not Recovered/Not Resolved]
  - Breast tenderness [Recovering/Resolving]
  - Application site discomfort [Recovering/Resolving]
  - Application site rash [Recovering/Resolving]
